FAERS Safety Report 14324974 (Version 1)
Quarter: 2017Q4

REPORT INFORMATION
  Report Type: Spontaneous
  Country: US (occurrence: US)
  Receive Date: 20171223
  Receipt Date: 20171223
  Transmission Date: 20180321
  Serious: Yes (Disabling)
  Sender: FDA-Public Use
  Company Number: None

PATIENT
  Age: 41 Year
  Sex: Female
  Weight: 57.6 kg

DRUGS (1)
  1. LEVAQUIN [Suspect]
     Active Substance: LEVOFLOXACIN
     Indication: PYELONEPHRITIS
     Route: 048
     Dates: start: 20150815, end: 20150824

REACTIONS (4)
  - Feeling abnormal [None]
  - Toxicity to various agents [None]
  - Neuropathy peripheral [None]
  - Muscular weakness [None]

NARRATIVE: CASE EVENT DATE: 20150815
